FAERS Safety Report 5482999-8 (Version None)
Quarter: 2007Q4

REPORT INFORMATION
  Report Type: 
  Country: None (occurrence: None)
  Receive Date: 20071011
  Receipt Date: 20070927
  Transmission Date: 20080405
  Serious: No
  Sender: FDA-Public Use
  Company Number: US-BOEHRINGER INGELHEIM PHARMACEUTICALS, INC.-2007-BP-20580BP

PATIENT
  Sex: Male

DRUGS (2)
  1. FLOMAX [Suspect]
     Indication: BENIGN PROSTATIC HYPERPLASIA
     Route: 048
     Dates: start: 20000901, end: 20070825
  2. PRESERVISION [Concomitant]
     Indication: MACULAR DEGENERATION
     Dates: end: 20070825

REACTIONS (3)
  - ASTHENIA [None]
  - DIZZINESS [None]
  - URINE FLOW DECREASED [None]
